FAERS Safety Report 7875655-X (Version None)
Quarter: 2011Q4

REPORT INFORMATION
  Report Type: 
  Country: None (occurrence: None)
  Receive Date: 20111031
  Receipt Date: 20111026
  Transmission Date: 20120403
  Serious: Yes (Hospitalization)
  Sender: FDA-Public Use
  Company Number: FR-AMGEN-FRASP2011055294

PATIENT
  Age: 57 Year
  Sex: Female

DRUGS (2)
  1. NEULASTA [Suspect]
     Indication: CHEMOTHERAPY
     Dosage: UNK
     Route: 058
     Dates: start: 20110810, end: 20110810
  2. ANTINEOPLASTIC AGENTS [Concomitant]

REACTIONS (2)
  - PRURITUS [None]
  - ANGIOEDEMA [None]
